FAERS Safety Report 16682693 (Version 1)
Quarter: 2019Q3

REPORT INFORMATION
  Report Type: Spontaneous
  Country: CN (occurrence: CN)
  Receive Date: 20190808
  Receipt Date: 20190808
  Transmission Date: 20191004
  Serious: Yes (Other)
  Sender: FDA-Public Use
  Company Number: CN-PFIZER INC-2019327075

PATIENT
  Age: 63 Year
  Sex: Male

DRUGS (6)
  1. CEFOPERAZONE SODIUM/SULBACTAM [Concomitant]
     Indication: PNEUMONIA ACINETOBACTER
     Dosage: 2.0 G, 4X/DAY
     Dates: start: 20170430, end: 20170506
  2. ASPIRIN [ACETYLSALICYLIC ACID] [Concomitant]
     Active Substance: ASPIRIN
     Indication: PROPHYLAXIS
     Dosage: UNK
     Dates: start: 20170417, end: 20170506
  3. CLOPIDOGREL [Concomitant]
     Active Substance: CLOPIDOGREL BISULFATE
     Indication: PROPHYLAXIS
     Dosage: UNK
     Dates: start: 20170417, end: 20170506
  4. ENOXAPARIN SODIUM. [Concomitant]
     Active Substance: ENOXAPARIN SODIUM
     Indication: ANTICOAGULANT THERAPY
     Dosage: UNK
     Dates: start: 20170417, end: 20170506
  5. TIGECYCLINE. [Suspect]
     Active Substance: TIGECYCLINE
     Indication: PNEUMONIA ACINETOBACTER
     Dosage: 100 MG, 2X/DAY
     Dates: start: 20170430, end: 20170512
  6. ATORVASTATIN [Concomitant]
     Active Substance: ATORVASTATIN
     Indication: ARTERIAL STIFFNESS
     Dosage: UNK
     Dates: start: 20170417

REACTIONS (4)
  - Hypofibrinogenaemia [Recovered/Resolved]
  - Coagulation test abnormal [Unknown]
  - Ecchymosis [Unknown]
  - Intentional overdose [Unknown]

NARRATIVE: CASE EVENT DATE: 20170430
